FAERS Safety Report 6906777-5 (Version None)
Quarter: 2010Q3

REPORT INFORMATION
  Report Type: 
  Country: None (occurrence: None)
  Receive Date: 20100802
  Receipt Date: 20100712
  Transmission Date: 20110219
  Serious: Yes (Death)
  Sender: FDA-Public Use
  Company Number: JPI-P-011375

PATIENT
  Age: 50 Year
  Sex: Male

DRUGS (4)
  1. XYREM [Suspect]
     Indication: INSOMNIA
     Dosage: 4.5 GM (2.25 GM, 2 IN 1 D),ORAL,   9 GM (4.5 GM, 2 IN 1 D),ORAL
     Route: 048
     Dates: start: 20100308, end: 20100101
  2. XYREM [Suspect]
     Indication: SLEEP APNOEA SYNDROME
     Dosage: 4.5 GM (2.25 GM, 2 IN 1 D),ORAL,   9 GM (4.5 GM, 2 IN 1 D),ORAL
     Route: 048
     Dates: start: 20100308, end: 20100101
  3. XYREM [Suspect]
     Indication: INSOMNIA
     Dosage: 4.5 GM (2.25 GM, 2 IN 1 D),ORAL,   9 GM (4.5 GM, 2 IN 1 D),ORAL
     Route: 048
     Dates: start: 20100101
  4. XYREM [Suspect]
     Indication: SLEEP APNOEA SYNDROME
     Dosage: 4.5 GM (2.25 GM, 2 IN 1 D),ORAL,   9 GM (4.5 GM, 2 IN 1 D),ORAL
     Route: 048
     Dates: start: 20100101

REACTIONS (1)
  - MYOCARDIAL INFARCTION [None]
